FAERS Safety Report 4408591-1 (Version None)
Quarter: 2004Q3

REPORT INFORMATION
  Report Type: 
  Country: None (occurrence: None)
  Receive Date: 20040723
  Receipt Date: 20040713
  Transmission Date: 20050211
  Serious: Yes (Hospitalization)
  Sender: FDA-Public Use
  Company Number: DE-JNJFOC-20040704248

PATIENT
  Age: 15 Year
  Sex: Male

DRUGS (1)
  1. CONCERTA [Suspect]
     Dosage: ORAL
     Route: 048
     Dates: start: 20040601

REACTIONS (3)
  - C-REACTIVE PROTEIN INCREASED [None]
  - LEUKOPENIA [None]
  - LYMPHOPENIA [None]
